FAERS Safety Report 21554008 (Version 1)
Quarter: 2022Q4

REPORT INFORMATION
  Report Type: Spontaneous
  Country: US (occurrence: US)
  Receive Date: 20221104
  Receipt Date: 20221104
  Transmission Date: 20230113
  Serious: No
  Sender: FDA-Public Use
  Company Number: US-BEH-2022151259

PATIENT
  Sex: Female

DRUGS (4)
  1. HIZENTRA [Suspect]
     Active Substance: HUMAN IMMUNOGLOBULIN G
     Indication: Immunodeficiency common variable
     Dosage: 45 GRAM, QOW
     Route: 058
     Dates: start: 20170118
  2. MYRBETRIQ [Concomitant]
     Active Substance: MIRABEGRON
  3. STRATTERA [Concomitant]
     Active Substance: ATOMOXETINE HYDROCHLORIDE
  4. SYNTHROID [Concomitant]
     Active Substance: LEVOTHYROXINE SODIUM

REACTIONS (5)
  - Tremor [Unknown]
  - Feeling of body temperature change [Unknown]
  - Abdominal pain upper [Unknown]
  - Back pain [Unknown]
  - Injection site reaction [Unknown]
